FAERS Safety Report 17161706 (Version 1)
Quarter: 2019Q4

REPORT INFORMATION
  Report Type: Spontaneous
  Country: US (occurrence: US)
  Receive Date: 20191217
  Receipt Date: 20191217
  Transmission Date: 20200122
  Serious: Yes (Life-Threatening, Hospitalization, Other)
  Sender: FDA-Public Use
  Company Number: US-CIPLA LTD.-2019US08100

PATIENT

DRUGS (6)
  1. LIDOCAINE. [Interacting]
     Active Substance: LIDOCAINE
     Indication: HEADACHE
     Dosage: 1 MILLIGRAM, PER MINUTE, ON DAY 1
  2. METFORMIN [Concomitant]
     Active Substance: METFORMIN HYDROCHLORIDE
     Indication: PRODUCT USED FOR UNKNOWN INDICATION
     Dosage: 1000 MILLIGRAM, QD (ONCE DAILY)
     Route: 065
  3. SERTRALINE [Suspect]
     Active Substance: SERTRALINE HYDROCHLORIDE
     Indication: MAJOR DEPRESSION
     Dosage: 200 MILLIGRAM, QD (ONCE DAILY)
     Route: 065
  4. TRAZODONE [Interacting]
     Active Substance: TRAZODONE HYDROCHLORIDE
     Indication: MAJOR DEPRESSION
     Dosage: 200 MILLIGRAM, QD (ONCE DAILY)
     Route: 048
  5. LIDOCAINE. [Interacting]
     Active Substance: LIDOCAINE
     Dosage: 2 MILLIGRAM, PER MINUTE, DAY 2
  6. GABAPENTIN. [Concomitant]
     Active Substance: GABAPENTIN
     Indication: PRODUCT USED FOR UNKNOWN INDICATION
     Dosage: 600 MILLIGRAM, UNK
     Route: 065

REACTIONS (10)
  - Balance disorder [Unknown]
  - Blood alkaline phosphatase increased [Unknown]
  - Bradycardia [Recovered/Resolved]
  - Drug interaction [Unknown]
  - Cardiac arrest [Recovered/Resolved]
  - Pulseless electrical activity [Recovered/Resolved]
  - Toxicity to various agents [Unknown]
  - Nystagmus [Unknown]
  - Drug level increased [Unknown]
  - Nausea [Unknown]
